FAERS Safety Report 23721821 (Version 1)
Quarter: 2024Q2

REPORT INFORMATION
  Report Type: Spontaneous
  Country: FR (occurrence: FR)
  Receive Date: 20240409
  Receipt Date: 20240409
  Transmission Date: 20240716
  Serious: Yes (Hospitalization)
  Sender: FDA-Public Use
  Company Number: None

PATIENT
  Age: 74 Year
  Sex: Female
  Weight: 82 kg

DRUGS (10)
  1. DAPTOMYCIN [Suspect]
     Active Substance: DAPTOMYCIN
     Indication: Prophylaxis
     Dates: start: 20240228, end: 20240301
  2. CEFOXITIN [Suspect]
     Active Substance: CEFOXITIN SODIUM
     Indication: Prophylaxis
     Dates: start: 20240301, end: 20240307
  3. MEROPENEM [Suspect]
     Active Substance: MEROPENEM
     Indication: Prophylaxis
     Dates: start: 20240226, end: 20240301
  4. PAROXETINE [Concomitant]
     Active Substance: PAROXETINE
  5. TEMOCILLIN [Concomitant]
     Active Substance: TEMOCILLIN
     Indication: Prophylaxis
     Dates: start: 20240309, end: 20240311
  6. LOVENOX [Concomitant]
     Active Substance: ENOXAPARIN SODIUM
  7. PREGABALIN [Concomitant]
     Active Substance: PREGABALIN
  8. OXYCODONE HYDROCHLORIDE [Concomitant]
     Active Substance: OXYCODONE HYDROCHLORIDE
  9. PANTOPRAZOLE [Concomitant]
     Active Substance: PANTOPRAZOLE
  10. ECONAZOLE [Concomitant]
     Active Substance: ECONAZOLE

REACTIONS (1)
  - Encephalopathy [Recovering/Resolving]

NARRATIVE: CASE EVENT DATE: 20240304
